FAERS Safety Report 4844930-5 (Version None)
Quarter: 2005Q4

REPORT INFORMATION
  Report Type: 
  Country: None (occurrence: None)
  Receive Date: 20051201
  Receipt Date: 20051201
  Transmission Date: 20060501
  Serious: Yes (Hospitalization)
  Sender: FDA-Public Use
  Company Number: None

PATIENT
  Sex: Male

DRUGS (1)
  1. LORAZEPAM [Suspect]
     Indication: PSYCHOTIC DISORDER
     Dosage: 2 MG THEN 4 MG
     Dates: start: 20050903, end: 20050903

REACTIONS (3)
  - DEPRESSED LEVEL OF CONSCIOUSNESS [None]
  - LETHARGY [None]
  - SEDATION [None]
